FAERS Safety Report 6931158-8 (Version None)
Quarter: 2010Q3

REPORT INFORMATION
  Report Type: 
  Country: None (occurrence: None)
  Receive Date: 20100813
  Receipt Date: 20100728
  Transmission Date: 20110219
  Serious: Yes (Death, Hospitalization)
  Sender: FDA-Public Use
  Company Number: 2010003290

PATIENT

DRUGS (2)
  1. ERLOTINIB (ERLOTINIB) (ERLOTINIB) [Suspect]
     Indication: PANCREATIC CARCINOMA METASTATIC
     Dosage: (100 MG, QD)
     Dates: start: 20100405, end: 20100706
  2. GEMCITABINE [Suspect]
     Indication: PANCREATIC CARCINOMA METASTATIC
     Dosage: (1000 MG/M2, 1 IN 1 WK), INTRAVENOUS
     Route: 042
     Dates: start: 20100405, end: 20100615

REACTIONS (9)
  - CARDIOMYOPATHY [None]
  - DECREASED APPETITE [None]
  - DEEP VEIN THROMBOSIS [None]
  - DEHYDRATION [None]
  - DISEASE PROGRESSION [None]
  - EARLY SATIETY [None]
  - FAILURE TO THRIVE [None]
  - MALNUTRITION [None]
  - SINUS TACHYCARDIA [None]
